FAERS Safety Report 6929360-4 (Version None)
Quarter: 2010Q3

REPORT INFORMATION
  Report Type: 
  Country: None (occurrence: None)
  Receive Date: 20100809
  Receipt Date: 20100302
  Transmission Date: 20110219
  Serious: No
  Sender: FDA-Public Use
  Company Number: US-001621

PATIENT
  Sex: Male
  Weight: 90.7194 kg

DRUGS (1)
  1. DEGARELIX (240 MG, 80 MG) [Suspect]
     Dosage: 240 MG 1X SUBCUTANEOUS, 80 MG 1X/MONTH SUBCUTANEOUS
     Route: 058
     Dates: start: 20090201, end: 20090201

REACTIONS (4)
  - DYSURIA [None]
  - INJECTION SITE ERYTHEMA [None]
  - INJECTION SITE PAIN [None]
  - WEIGHT INCREASED [None]
